APPROVED DRUG PRODUCT: PRO-BANTHINE
Active Ingredient: PROPANTHELINE BROMIDE
Strength: 30MG/VIAL
Dosage Form/Route: INJECTABLE;INJECTION
Application: N008843 | Product #001
Applicant: GD SEARLE LLC
Approved: Approved Prior to Jan 1, 1982 | RLD: No | RS: No | Type: DISCN